FAERS Safety Report 6079193-9 (Version None)
Quarter: 2009Q1

REPORT INFORMATION
  Report Type: 
  Country: None (occurrence: None)
  Receive Date: 20090216
  Receipt Date: 20090210
  Transmission Date: 20090719
  Serious: Yes (Life-Threatening)
  Sender: FDA-Public Use
  Company Number: B0558444A

PATIENT
  Age: 13 Year
  Sex: Male

DRUGS (1)
  1. RELENZA [Suspect]
     Indication: INFLUENZA
     Dosage: 10MG TWICE PER DAY
     Route: 055
     Dates: start: 20090206, end: 20090206

REACTIONS (7)
  - ABNORMAL BEHAVIOUR [None]
  - BACK PAIN [None]
  - MEMORY IMPAIRMENT [None]
  - RESTLESSNESS [None]
  - SCREAMING [None]
  - SOMNAMBULISM [None]
  - TINNITUS [None]
